FAERS Safety Report 5800157-1 (Version None)
Quarter: 2008Q3

REPORT INFORMATION
  Report Type: 
  Country: None (occurrence: None)
  Receive Date: 20080702
  Receipt Date: 20080702
  Transmission Date: 20090109
  Serious: Yes (Other)
  Sender: FDA-Public Use
  Company Number: None

PATIENT
  Sex: Female

DRUGS (7)
  1. DIGITEK 0.125MG MYLAN/BERTEK [Suspect]
     Dosage: TAKE 1 TABLET ORALLY DAILY, MEDICATION SHIPPED ON 2/25/08
     Route: 048
  2. ISOSORBIDE MONOMITRATE ER [Concomitant]
  3. NEXIUM [Concomitant]
  4. CARVEDILOL [Concomitant]
  5. ZETIA [Concomitant]
  6. SYNTHROID [Concomitant]
  7. ALPRAZOLAM [Concomitant]

REACTIONS (4)
  - DIZZINESS [None]
  - FALL [None]
  - PALPITATIONS [None]
  - PHARMACEUTICAL PRODUCT COMPLAINT [None]
